FAERS Safety Report 24215939 (Version 2)
Quarter: 2024Q3

REPORT INFORMATION
  Report Type: Spontaneous
  Country: CZ (occurrence: CZ)
  Receive Date: 20240816
  Receipt Date: 20240819
  Transmission Date: 20241017
  Serious: Yes (Other)
  Sender: ROCHE
  Company Number: CZ-MYLANLABS-2024M1046373

PATIENT
  Age: 72 Year
  Sex: Female

DRUGS (2)
  1. IBANDRONIC ACID [Suspect]
     Active Substance: IBANDRONIC ACID
     Indication: Osteoporosis
     Dosage: UNK
     Route: 042
     Dates: start: 201912
  2. IBANDRONIC ACID [Suspect]
     Active Substance: IBANDRONIC ACID
     Dosage: 3 MILLIGRAM
     Route: 042
     Dates: start: 202204

REACTIONS (5)
  - Eye inflammation [Recovered/Resolved]
  - Uveitis [Recovered/Resolved]
  - Eye opacity [Recovered/Resolved]
  - Scleritis [Recovered/Resolved]
  - Conjunctivitis [Recovered/Resolved]

NARRATIVE: CASE EVENT DATE: 20220101
